FAERS Safety Report 4827844-6 (Version None)
Quarter: 2005Q4

REPORT INFORMATION
  Report Type: 
  Country: None (occurrence: None)
  Receive Date: 20051110
  Receipt Date: 20051028
  Transmission Date: 20060501
  Serious: Yes (Hospitalization)
  Sender: FDA-Public Use
  Company Number: 2005BI007231

PATIENT
  Age: 52 Year
  Sex: Female
  Weight: 68.0396 kg

DRUGS (5)
  1. AVONEX [Suspect]
     Indication: MULTIPLE SCLEROSIS
     Dosage: 30 UG; QW; IM
     Route: 030
     Dates: start: 20010512, end: 20030101
  2. AVONEX [Suspect]
     Indication: MULTIPLE SCLEROSIS
     Dosage: 30 UG; QW; IM
     Route: 030
     Dates: start: 20030101
  3. VALIUM [Concomitant]
  4. BACLOFEN [Concomitant]
  5. ADDERALL 10 [Concomitant]

REACTIONS (16)
  - ALOPECIA [None]
  - AMNESIA [None]
  - ANXIETY [None]
  - ASTHENIA [None]
  - CONDITION AGGRAVATED [None]
  - DEPRESSION [None]
  - DIZZINESS [None]
  - EYE HAEMORRHAGE [None]
  - FALL [None]
  - FATIGUE [None]
  - FEELING ABNORMAL [None]
  - INJURY [None]
  - RELAPSING-REMITTING MULTIPLE SCLEROSIS [None]
  - SEXUAL ABUSE [None]
  - STRESS [None]
  - TOOTH LOSS [None]
